FAERS Safety Report 5063622-3 (Version None)
Quarter: 2006Q3

REPORT INFORMATION
  Report Type: 
  Country: None (occurrence: None)
  Receive Date: 20060724
  Receipt Date: 20060712
  Transmission Date: 20061208
  Serious: Yes (Hospitalization)
  Sender: FDA-Public Use
  Company Number: HQWYE873013JUL06

PATIENT
  Age: 72 Year
  Sex: Female

DRUGS (7)
  1. CORDAREX (AMIODARONE, TABLET) [Suspect]
     Indication: TACHYCARDIA PAROXYSMAL
     Dosage: 150 MG 3X PER 1 DAY ORAL
     Route: 048
     Dates: start: 20051013, end: 20051023
  2. MOVODIGAL (DIGOXIN) [Concomitant]
  3. DECORTIN (PREDNISONE) [Concomitant]
  4. VOLTAREN [Concomitant]
  5. DYTIDE H (HYDROCHLOROTHIAZIDE/TRIAMTERENE) [Concomitant]
  6. NEBIVOLOL HCL [Concomitant]
  7. THEOPHYLLINE [Concomitant]

REACTIONS (5)
  - ALOPECIA [None]
  - ANOREXIA [None]
  - ASTHENIA [None]
  - NAUSEA [None]
  - WEIGHT DECREASED [None]
